FAERS Safety Report 9773924 (Version 1)
Quarter: 2013Q4

REPORT INFORMATION
  Report Type: Spontaneous
  Country: US (occurrence: US)
  Receive Date: 20131220
  Receipt Date: 20131220
  Transmission Date: 20140711
  Serious: No
  Sender: FDA-Public Use
  Company Number: US-009507513-1312USA003649

PATIENT
  Sex: Female

DRUGS (8)
  1. ASMANEX TWISTHALER [Suspect]
     Indication: EMPHYSEMA
     Dosage: 220 MICROGRAM, TWICE DAILY
     Route: 055
     Dates: start: 2012
  2. ASMANEX TWISTHALER [Suspect]
     Indication: ASTHMA
  3. SPIRIVA [Concomitant]
     Dosage: ONCE DAILY
  4. FORADIL [Concomitant]
     Dosage: TWICE DAILY
  5. SINGULAIR [Concomitant]
     Dosage: ONCE DAILY
  6. PROAIR (ALBUTEROL SULFATE) [Concomitant]
     Dosage: AS NEEDED
  7. DALIRESP [Concomitant]
  8. OXYGEN [Concomitant]

REACTIONS (6)
  - Wheezing [Recovering/Resolving]
  - Cough [Recovering/Resolving]
  - Drug dose omission [Unknown]
  - Off label use [Unknown]
  - Incorrect dose administered [Unknown]
  - Product quality issue [Unknown]
